FAERS Safety Report 12994897 (Version 1)
Quarter: 2016Q4

REPORT INFORMATION
  Report Type: Other
  Country: None (occurrence: US)
  Receive Date: 20161202
  Receipt Date: 20161202
  Transmission Date: 20170207
  Serious: Yes (Hospitalization, Other)
  Sender: FDA-Public Use
  Company Number: US-ALSI-201600343

PATIENT
  Age: 77 Year
  Sex: Male

DRUGS (1)
  1. CARBON DIOXIDE. [Suspect]
     Active Substance: CARBON DIOXIDE
     Indication: COLONOSCOPY

REACTIONS (2)
  - Large intestine perforation [Unknown]
  - Barotrauma [Unknown]
